FAERS Safety Report 16242944 (Version 2)
Quarter: 2019Q2

REPORT INFORMATION
  Report Type: Spontaneous
  Country: HU (occurrence: HU)
  Receive Date: 20190426
  Receipt Date: 20190509
  Transmission Date: 20190711
  Serious: Yes (Other)
  Sender: FDA-Public Use
  Company Number: HU-ASTRAZENECA-2019SE60395

PATIENT
  Age: 42 Year
  Sex: Female

DRUGS (11)
  1. EVEROLIMUS. [Suspect]
     Active Substance: EVEROLIMUS
     Indication: PALLIATIVE CARE
     Dosage: 10 MG, OT
     Route: 065
     Dates: start: 201809
  2. CYCLOPHOSPHAMIDE. [Suspect]
     Active Substance: CYCLOPHOSPHAMIDE
     Indication: PRODUCT USED FOR UNKNOWN INDICATION
     Dosage: UNKNOWN
     Route: 065
     Dates: start: 2007, end: 2007
  3. LETROZOLE. [Suspect]
     Active Substance: LETROZOLE
     Indication: INVASIVE DUCTAL BREAST CARCINOMA
     Dosage: UNK
     Route: 065
     Dates: start: 20140210, end: 20170207
  4. PALBOCICLIB [Concomitant]
     Active Substance: PALBOCICLIB
     Dosage: UNKNOWN
     Route: 065
     Dates: start: 201808, end: 201809
  5. LUCRIN [Concomitant]
     Active Substance: LEUPROLIDE ACETATE
     Indication: INVASIVE DUCTAL BREAST CARCINOMA
     Dosage: UNKNOWN
     Route: 065
     Dates: start: 201112, end: 20170207
  6. FULVESTRANT. [Suspect]
     Active Substance: FULVESTRANT
     Indication: PALLIATIVE CARE
     Dosage: UNKNOWN
     Route: 030
     Dates: start: 201703, end: 201809
  7. FLUOROURACIL. [Suspect]
     Active Substance: FLUOROURACIL
     Indication: PRODUCT USED FOR UNKNOWN INDICATION
     Dosage: UNKNOWN
     Route: 065
     Dates: start: 2007, end: 2007
  8. TAMOXIFEN [Concomitant]
     Active Substance: TAMOXIFEN
     Indication: INVASIVE DUCTAL BREAST CARCINOMA
     Dosage: UNKNOWN
     Route: 065
     Dates: start: 201112, end: 201311
  9. EPIRUBICIN [Suspect]
     Active Substance: EPIRUBICIN
     Indication: PRODUCT USED FOR UNKNOWN INDICATION
     Dosage: UNKNOWN
     Route: 065
     Dates: start: 2007, end: 2007
  10. EXEMESTANE. [Concomitant]
     Active Substance: EXEMESTANE
     Indication: PALLIATIVE CARE
     Dosage: 25.0MG UNKNOWN
     Route: 065
     Dates: start: 201809
  11. PALBOCICLIB [Concomitant]
     Active Substance: PALBOCICLIB
     Dosage: UNKNOWN
     Route: 065
     Dates: start: 201703, end: 201808

REACTIONS (7)
  - Metastases to bone [Unknown]
  - Breast cancer recurrent [Unknown]
  - Dyspnoea [Recovered/Resolved]
  - Metastases to lymph nodes [Unknown]
  - Cough [Recovered/Resolved]
  - Neutropenia [Recovered/Resolved]
  - Metastases to pleura [Unknown]

NARRATIVE: CASE EVENT DATE: 2018
